FAERS Safety Report 4554025-6 (Version None)
Quarter: 2005Q1

REPORT INFORMATION
  Report Type: 
  Country: None (occurrence: None)
  Receive Date: 20050118
  Receipt Date: 20040820
  Transmission Date: 20050727
  Serious: Yes (Hospitalization)
  Sender: FDA-Public Use
  Company Number: US-MERCK-0408USA01686

PATIENT
  Age: 38 Year
  Sex: Male
  Weight: 90 kg

DRUGS (6)
  1. COZAAR [Suspect]
     Indication: CARDIAC FAILURE CONGESTIVE
     Route: 048
  2. FLAGYL [Concomitant]
     Route: 065
  3. DOPAMINE HYDROCHLORIDE [Concomitant]
     Route: 065
  4. ASPIRIN [Concomitant]
     Route: 065
  5. LIPITOR [Concomitant]
     Route: 065
  6. METOPROLOL [Concomitant]
     Route: 065

REACTIONS (3)
  - CARDIAC FAILURE CONGESTIVE [None]
  - DYSGEUSIA [None]
  - HYPOAESTHESIA ORAL [None]
